FAERS Safety Report 22869346 (Version 7)
Quarter: 2023Q4

REPORT INFORMATION
  Report Type: Report from Study
  Country: US (occurrence: US)
  Receive Date: 20230826
  Receipt Date: 20231114
  Transmission Date: 20240110
  Serious: No
  Sender: FDA-Public Use
  Company Number: US-002147023-NVSC2023US184550

PATIENT
  Sex: Female

DRUGS (3)
  1. LEQVIO [Suspect]
     Active Substance: INCLISIRAN SODIUM
     Indication: Product used for unknown indication
     Dosage: UNK
     Route: 058
     Dates: start: 20230809
  2. CRESTOR [Concomitant]
     Active Substance: ROSUVASTATIN CALCIUM
     Indication: Product used for unknown indication
     Dosage: UNK
     Route: 065
  3. CRESTOR [Concomitant]
     Active Substance: ROSUVASTATIN CALCIUM
     Dosage: 10 MG
     Route: 065

REACTIONS (9)
  - Gastrointestinal sounds abnormal [Unknown]
  - Diarrhoea [Unknown]
  - Hernia [Unknown]
  - Arthralgia [Unknown]
  - Arthritis [Unknown]
  - Abdominal distension [Unknown]
  - COVID-19 [Unknown]
  - Insomnia [Unknown]
  - Injection site reaction [Unknown]
